FAERS Safety Report 25704923 (Version 1)
Quarter: 2025Q3

REPORT INFORMATION
  Report Type: Report from Study
  Country: US (occurrence: US)
  Receive Date: 20250820
  Receipt Date: 20250820
  Transmission Date: 20251020
  Serious: Yes (Other)
  Sender: MALLINCKRODT
  Company Number: US-MALLINCKRODT-MNK202504994

PATIENT
  Sex: Male

DRUGS (2)
  1. CORTICOTROPIN [Suspect]
     Active Substance: CORTICOTROPIN
     Indication: Multiple sclerosis
     Dates: start: 19790801
  2. CORTICOTROPIN [Suspect]
     Active Substance: CORTICOTROPIN
     Dosage: 80 UNITS (RESTARTING)
     Route: 058
     Dates: start: 2025

REACTIONS (8)
  - Multiple sclerosis relapse [Unknown]
  - Cataract [Unknown]
  - Lacrimation increased [Unknown]
  - Sensitivity to weather change [Unknown]
  - Eye pain [Not Recovered/Not Resolved]
  - Localised infection [Not Recovered/Not Resolved]
  - Oedema peripheral [Unknown]
  - Loss of therapeutic response [Unknown]
